FAERS Safety Report 10518896 (Version 2)
Quarter: 2014Q4

REPORT INFORMATION
  Report Type: Report from Study
  Country: US (occurrence: US)
  Receive Date: 20141015
  Receipt Date: 20141015
  Transmission Date: 20150528
  Serious: Yes (Hospitalization)
  Sender: FDA-Public Use
  Company Number: US-BAYER-2014-133678

PATIENT
  Age: 49 Year
  Sex: Female

DRUGS (2)
  1. STIVARGA [Suspect]
     Active Substance: REGORAFENIB
     Indication: COLON CANCER
     Dosage: 160 MG DAILY
     Route: 048
     Dates: start: 20140828
  2. STIVARGA [Suspect]
     Active Substance: REGORAFENIB
     Indication: COLON CANCER
     Dosage: 120 MG, QD
     Route: 048
     Dates: start: 20140927, end: 20141002

REACTIONS (6)
  - Pneumonia [Not Recovered/Not Resolved]
  - Pain in extremity [None]
  - Hypoaesthesia [None]
  - Odynophagia [Not Recovered/Not Resolved]
  - Neuropathy peripheral [None]
  - Oral pain [Recovering/Resolving]

NARRATIVE: CASE EVENT DATE: 20140908
